FAERS Safety Report 4477878-9 (Version None)
Quarter: 2004Q4

REPORT INFORMATION
  Report Type: 
  Country: None (occurrence: None)
  Receive Date: 20041018
  Receipt Date: 20041004
  Transmission Date: 20050328
  Serious: Yes (Hospitalization)
  Sender: FDA-Public Use
  Company Number: BR-MERCK-0410BRA00196

PATIENT
  Age: 61 Year
  Sex: Female

DRUGS (7)
  1. ATENOLOL [Concomitant]
     Indication: HYPERTENSION
     Route: 065
  2. CAPOTEN [Concomitant]
     Indication: HYPERTENSION
     Route: 065
  3. PLAVIX [Concomitant]
     Route: 065
  4. ISOSORBIDE MONONITRATE [Concomitant]
     Route: 065
  5. VIOXX [Suspect]
     Indication: INFECTION
     Route: 048
     Dates: start: 20030301, end: 20030601
  6. VIOXX [Suspect]
     Route: 048
     Dates: start: 20030601, end: 20031001
  7. SIMVASTATIN [Concomitant]
     Route: 065

REACTIONS (2)
  - MYOCARDIAL INFARCTION [None]
  - RENAL IMPAIRMENT [None]
